FAERS Safety Report 4624053-0 (Version None)
Quarter: 2005Q1

REPORT INFORMATION
  Report Type: 
  Country: None (occurrence: None)
  Receive Date: 20050329
  Receipt Date: 20050315
  Transmission Date: 20050727
  Serious: Yes (Life-Threatening, Other)
  Sender: FDA-Public Use
  Company Number: 2005S1000096

PATIENT

DRUGS (1)
  1. ACITRETIN (ACITRETIN) [Suspect]
     Indication: PSORIASIS
     Dosage: PO
     Route: 048

REACTIONS (1)
  - BLADDER CANCER [None]
